FAERS Safety Report 10729338 (Version 1)
Quarter: 2015Q1

REPORT INFORMATION
  Report Type: Spontaneous
  Country: IL (occurrence: IL)
  Receive Date: 20150122
  Receipt Date: 20150122
  Transmission Date: 20150721
  Serious: Yes (Other)
  Sender: FDA-Public Use
  Company Number: IL-009507513-1406ISR013932

PATIENT
  Age: 61 Year
  Sex: Male
  Weight: 60 kg

DRUGS (7)
  1. OPTALGIN [Concomitant]
     Active Substance: METAMIZOLE
     Indication: PYREXIA
  2. COLCHICINE. [Concomitant]
     Active Substance: COLCHICINE
     Indication: FAMILIAL MEDITERRANEAN FEVER
     Dosage: UNK
  3. COPEGUS [Suspect]
     Active Substance: RIBAVIRIN
     Indication: HEPATITIS C
     Dosage: UNK
     Route: 048
     Dates: start: 20140522, end: 20140828
  4. PEGASYS [Suspect]
     Active Substance: PEGINTERFERON ALFA-2A
     Indication: HEPATITIS C
     Dosage: UNK
     Dates: start: 20140619, end: 20141119
  5. OPTALGIN [Concomitant]
     Active Substance: METAMIZOLE
     Indication: PAIN
     Dosage: UNK
  6. BONDORMIN [Concomitant]
     Indication: INSOMNIA
     Dosage: UNK
  7. VICTRELIS [Suspect]
     Active Substance: BOCEPREVIR
     Indication: HEPATITIS C
     Dosage: UNK, TID
     Route: 048
     Dates: start: 20140609, end: 20141119

REACTIONS (23)
  - Bone pain [Not Recovered/Not Resolved]
  - Pruritus generalised [Unknown]
  - Drug ineffective [Unknown]
  - Myalgia [Not Recovered/Not Resolved]
  - Platelet count decreased [Unknown]
  - Inappropriate schedule of drug administration [Unknown]
  - Hepatic enzyme increased [Unknown]
  - Vision blurred [Unknown]
  - Arthralgia [Not Recovered/Not Resolved]
  - Anal haemorrhage [Unknown]
  - White blood cell count decreased [Unknown]
  - Hypoacusis [Unknown]
  - Intestinal prolapse [Not Recovered/Not Resolved]
  - Haemorrhoids [Unknown]
  - Diarrhoea [Unknown]
  - Pyrexia [Not Recovered/Not Resolved]
  - Pyrexia [Unknown]
  - Asthenia [Not Recovered/Not Resolved]
  - Rectal tenesmus [Unknown]
  - Weight decreased [Unknown]
  - Fatigue [Not Recovered/Not Resolved]
  - Diarrhoea [Not Recovered/Not Resolved]
  - Viral load increased [Unknown]

NARRATIVE: CASE EVENT DATE: 2014
